FAERS Safety Report 8281927-X (Version None)
Quarter: 2012Q2

REPORT INFORMATION
  Report Type: 
  Country: None (occurrence: None)
  Receive Date: 20120413
  Receipt Date: 20120404
  Transmission Date: 20120825
  Serious: Yes (Other)
  Sender: FDA-Public Use
  Company Number: CA-JNJFOC-20120402820

PATIENT

DRUGS (2)
  1. LEVOFLOXACIN [Suspect]
     Indication: RESPIRATORY TRACT INFECTION
     Route: 048
  2. LEVOFLOXACIN [Suspect]
     Indication: GENITOURINARY TRACT INFECTION
     Route: 048

REACTIONS (1)
  - RETINAL DETACHMENT [None]
